FAERS Safety Report 13853053 (Version 1)
Quarter: 2017Q3

REPORT INFORMATION
  Report Type: Spontaneous
  Country: FR (occurrence: FR)
  Receive Date: 20170810
  Receipt Date: 20170810
  Transmission Date: 20171127
  Serious: Yes (Hospitalization)
  Sender: FDA-Public Use
  Company Number: FR-ACCORD-057042

PATIENT
  Age: 65 Year
  Sex: Male
  Weight: 73 kg

DRUGS (7)
  1. METHYLPREDNISOLONE MYLAN [Concomitant]
     Active Substance: METHYLPREDNISOLONE
     Route: 042
     Dates: start: 20170629
  2. SODIUM LEVOFOLINATE ZENTIVA [Concomitant]
     Route: 042
     Dates: start: 20170629
  3. EMEND [Concomitant]
     Active Substance: APREPITANT
     Route: 048
     Dates: start: 20170629
  4. IRINOTECAN HOSIPIRA [Suspect]
     Active Substance: IRINOTECAN
     Indication: RECTAL CANCER
     Route: 042
     Dates: start: 20170629
  5. ONDANSETRON ACCORD [Concomitant]
     Active Substance: ONDANSETRON
     Route: 042
     Dates: start: 20170629
  6. FLUOROURACIL ACCORD [Suspect]
     Active Substance: FLUOROURACIL
     Indication: RECTAL CANCER
     Route: 042
     Dates: start: 20170629
  7. VECTIBIX [Suspect]
     Active Substance: PANITUMUMAB
     Indication: RECTAL CANCER
     Route: 042
     Dates: start: 20170629

REACTIONS (4)
  - Blepharitis [Recovering/Resolving]
  - Burning sensation [Recovering/Resolving]
  - Sleep disorder [None]
  - Conjunctivitis [Recovering/Resolving]

NARRATIVE: CASE EVENT DATE: 20170701
